FAERS Safety Report 5798874-5 (Version None)
Quarter: 2008Q2

REPORT INFORMATION
  Report Type: 
  Country: None (occurrence: None)
  Receive Date: 20080630
  Receipt Date: 20080618
  Transmission Date: 20081010
  Serious: Yes (Hospitalization, Other)
  Sender: FDA-Public Use
  Company Number: 2008-01800

PATIENT
  Age: 71 Year
  Sex: Male
  Weight: 46 kg

DRUGS (46)
  1. VELCADE [Suspect]
     Indication: MULTIPLE MYELOMA
     Dosage: 1.8 MG, INTRAVENOUS
     Route: 042
     Dates: start: 20080515, end: 20080519
  2. DEXAMETHASONE TAB [Suspect]
     Indication: MULTIPLE MYELOMA
     Dosage: 38 MG, INTRAVENOUS
     Route: 042
     Dates: start: 20080515, end: 20080520
  3. ZANTAC [Suspect]
     Dosage: 1 DF, ORAL
     Route: 048
     Dates: start: 20080512, end: 20080518
  4. LENDORM [Suspect]
     Dosage: 1 DF, ORAL
     Route: 048
     Dates: start: 20080523, end: 20080529
  5. MUCOSTA(REBAMIPIDE) [Suspect]
     Dosage: 1 DF, ORAL
     Route: 048
     Dates: start: 20080526, end: 20080528
  6. PIPERACILLIN SODIUM [Suspect]
     Dosage: 4 MG, INTRAVENOUS
     Route: 042
     Dates: start: 20080524, end: 20080604
  7. SEISHOKU(SODIUM CHLORIDE) [Suspect]
     Dosage: 2 DF, INTRAVENOUS
     Route: 042
     Dates: start: 20080527, end: 20080531
  8. SOLU-MEDROL [Suspect]
     Dosage: SEE IMAGE
     Route: 042
     Dates: start: 20080528, end: 20080528
  9. SOLU-MEDROL [Suspect]
     Dosage: SEE IMAGE
     Route: 042
     Dates: start: 20080531, end: 20080601
  10. SOLU-MEDROL [Suspect]
     Dosage: SEE IMAGE
     Route: 042
     Dates: start: 20080602, end: 20080602
  11. SOLU-MEDROL [Suspect]
     Dosage: SEE IMAGE
     Route: 042
     Dates: start: 20080603, end: 20080606
  12. SOLU-MEDROL [Suspect]
     Dosage: SEE IMAGE
     Route: 042
     Dates: start: 20080607, end: 20080609
  13. SOLU-MEDROL [Suspect]
     Dosage: SEE IMAGE
     Route: 042
     Dates: start: 20080610
  14. LOXONIN (LOXOPROFEN SODIUM) [Concomitant]
  15. SELBEX (TEPRENONE) [Concomitant]
  16. PREDONINE (PREDNISOLONE) [Concomitant]
  17. UNIPHYL [Concomitant]
  18. CRESTOR [Concomitant]
  19. ZYRTEC [Concomitant]
  20. VITANEURIN (THIAMINE HYDROCHLORIDE) [Concomitant]
  21. ADALAT CC [Concomitant]
  22. ALLOPURINOL [Concomitant]
  23. MAGNESIUM OXIDE (MAGNESIUM OXIDE) [Concomitant]
  24. LENDORM [Concomitant]
  25. LEVOFLOXACIN [Concomitant]
  26. PURSENNID (SENNA LEAF) [Concomitant]
  27. ALLELOCK (OLOPATADINE HYDROCHLORIDE) [Concomitant]
  28. LAXOBERON (SODIUM PICOSULFATE) [Concomitant]
  29. EURODIN (ESTAZOLAM) [Concomitant]
  30. OMEPRAL (OMEPRAZOLE) [Concomitant]
  31. HOCHUUEKKITOU (HERBAL EXTRACTS NOS) [Concomitant]
  32. GASMOTIN (MOSAPRIDE CITRATE) [Concomitant]
  33. ASPARTATE POTASSIUM (ASPARTATE POTASSIUM) [Concomitant]
  34. NAUZELIN (DOMPERIDONE) [Concomitant]
  35. LIDOCAINE [Concomitant]
  36. ORGADRONE (DEXAMETHASONE SODIUM PHOSPHATE) [Concomitant]
  37. POTACOL-R (SODIUM LACTATE, SODIUM CHLORIDE, MALTOSE, POTASSIUM CHLORID [Concomitant]
  38. PRIMPERAN TAB [Concomitant]
  39. OMEPRAL (OMEPRAZOLE) [Concomitant]
  40. HUMULIN (INSULIN HUMAN, INSULIN ISOPHANE, HUMAN BIOSYNTHETIC) [Concomitant]
  41. VITAMEDIN INTRAVENOUS (PYRIDOXINE HYDROCHLORIDE, THIAMINE DISULFIDE, C [Concomitant]
  42. SODIUM BICARBONATE [Concomitant]
  43. SOLITA T (ELECTROLYTES NOS) [Concomitant]
  44. ORGARAN [Concomitant]
  45. LASIX [Concomitant]
  46. FOY (GABEXATE MESILATE) [Concomitant]

REACTIONS (12)
  - BLOOD LACTATE DEHYDROGENASE INCREASED [None]
  - BLOOD PHOSPHORUS INCREASED [None]
  - DISSEMINATED INTRAVASCULAR COAGULATION [None]
  - GINGIVAL BLEEDING [None]
  - HERPES ZOSTER [None]
  - INTERSTITIAL LUNG DISEASE [None]
  - MYASTHENIA GRAVIS [None]
  - OXYGEN SATURATION DECREASED [None]
  - PLEURAL EFFUSION [None]
  - PULMONARY OEDEMA [None]
  - RENAL FAILURE [None]
  - TUMOUR LYSIS SYNDROME [None]
